FAERS Safety Report 21342242 (Version 1)
Quarter: 2022Q3

REPORT INFORMATION
  Report Type: Spontaneous
  Country: US (occurrence: None)
  Receive Date: 20220916
  Receipt Date: 20220916
  Transmission Date: 20221027
  Serious: No
  Sender: FDA-Public Use
  Company Number: None

PATIENT
  Age: 75 Year
  Sex: Male
  Weight: 75.75 kg

DRUGS (1)
  1. NIRMATRELVIR\RITONAVIR [Suspect]
     Active Substance: NIRMATRELVIR\RITONAVIR
     Dosage: OTHER QUANTITY : 300MG/100MG;?FREQUENCY : TWICE A DAY;?
     Route: 048
     Dates: start: 20220912, end: 20220914

REACTIONS (3)
  - Angioedema [None]
  - Eyelid disorder [None]
  - Blister [None]

NARRATIVE: CASE EVENT DATE: 20220914
